FAERS Safety Report 5213009-5 (Version None)
Quarter: 2007Q1

REPORT INFORMATION
  Report Type: 
  Country: None (occurrence: None)
  Receive Date: 20070117
  Receipt Date: 20070117
  Transmission Date: 20070707
  Serious: Yes (Hospitalization)
  Sender: FDA-Public Use
  Company Number: None

PATIENT
  Age: 51 Year
  Sex: Female
  Weight: 60 kg

DRUGS (5)
  1. HYDROMORPHONE HCL [Suspect]
     Indication: COLITIS ULCERATIVE
     Dosage: 4 TO 6 MG EVERY 4 HOURS PRN PO
     Route: 048
     Dates: start: 20060901, end: 20061231
  2. HYDROMORPHONE HCL [Suspect]
     Indication: PAIN
     Dosage: 4 TO 6 MG EVERY 4 HOURS PRN PO
     Route: 048
     Dates: start: 20060901, end: 20061231
  3. DONNATAL [Concomitant]
  4. PRIMIDONE [Concomitant]
  5. TRAZODONE HCL [Concomitant]

REACTIONS (2)
  - CONSTIPATION [None]
  - ILEUS [None]
